FAERS Safety Report 10017599 (Version 2)
Quarter: 2014Q1

REPORT INFORMATION
  Report Type: Spontaneous
  Country: US (occurrence: US)
  Receive Date: 20140318
  Receipt Date: 20140318
  Transmission Date: 20141002
  Serious: Yes (Other)
  Sender: FDA-Public Use
  Company Number: US-BRISTOL-MYERS SQUIBB COMPANY-17383910

PATIENT
  Age: 57 Year
  Sex: Male

DRUGS (11)
  1. ERBITUX [Suspect]
     Indication: COLORECTAL CANCER
     Dosage: 435 MG EVERY WEEK IV THROUGH PORT
     Route: 042
     Dates: start: 20130121
  2. BENADRYL [Concomitant]
     Indication: PREMEDICATION
     Route: 042
  3. PEPCID [Concomitant]
  4. DECADRON [Concomitant]
  5. NORCO [Concomitant]
  6. VALIUM [Concomitant]
  7. LASIX [Concomitant]
  8. IRON [Concomitant]
  9. XOPENEX [Concomitant]
     Dosage: INHALER
  10. MULTIVITAMIN [Concomitant]
  11. SENNA [Concomitant]

REACTIONS (1)
  - Infusion related reaction [Unknown]
